FAERS Safety Report 9049824 (Version 1)
Quarter: 2013Q1

REPORT INFORMATION
  Report Type: Spontaneous
  Country: GB (occurrence: GB)
  Receive Date: 20130205
  Receipt Date: 20130205
  Transmission Date: 20140127
  Serious: Yes (Death, Other)
  Sender: FDA-Public Use
  Company Number: GB-ABBOTT-13P-167-1045573-00

PATIENT
  Age: 40 Year
  Sex: Female

DRUGS (2)
  1. VALPROATE SODIUM [Suspect]
     Indication: MOOD SWINGS
     Dosage: 400 MILLIGRAM(S); DAILY
     Route: 048
  2. CLOZAPINE [Suspect]
     Indication: PRODUCT USED FOR UNKNOWN INDICATION
     Route: 065
     Dates: start: 20101116, end: 20121214

REACTIONS (3)
  - Pulmonary embolism [Fatal]
  - Upper respiratory tract infection [Unknown]
  - Cough [Unknown]
